FAERS Safety Report 4938816-5 (Version None)
Quarter: 2006Q1

REPORT INFORMATION
  Report Type: 
  Country: None (occurrence: None)
  Receive Date: 20060131
  Receipt Date: 20051209
  Transmission Date: 20060701
  Serious: No
  Sender: FDA-Public Use
  Company Number: 200520458US

PATIENT
  Age: 46 Year
  Sex: Female

DRUGS (3)
  1. KETEK [Suspect]
     Indication: ASTHMA
     Dosage: 800 MG BID PO
     Route: 048
     Dates: start: 20051206
  2. KETEK [Suspect]
     Indication: BRONCHITIS
     Dosage: 800 MG BID PO
     Route: 048
     Dates: start: 20051206
  3. METFORMIN [Concomitant]

REACTIONS (1)
  - DIARRHOEA [None]
